FAERS Safety Report 4499686-5 (Version None)
Quarter: 2004Q4

REPORT INFORMATION
  Report Type: 
  Country: None (occurrence: None)
  Receive Date: 20041108
  Receipt Date: 20041022
  Transmission Date: 20050328
  Serious: Yes (Hospitalization)
  Sender: FDA-Public Use
  Company Number: MEDI-0002342

PATIENT
  Age: 13 Month
  Sex: Female

DRUGS (5)
  1. SYNAGIS [Suspect]
     Indication: ANTIVIRAL PROPHYLAXIS
     Dosage: 122 MG, 1IN 30 D, INTRAMUSCULAR; SEE IMAGE
     Route: 030
     Dates: start: 20031027, end: 20031202
  2. SYNAGIS [Suspect]
     Indication: ANTIVIRAL PROPHYLAXIS
     Dosage: 122 MG, 1IN 30 D, INTRAMUSCULAR; SEE IMAGE
     Route: 030
     Dates: start: 20031027
  3. SYNAGIS [Suspect]
     Indication: ANTIVIRAL PROPHYLAXIS
     Dosage: 122 MG, 1IN 30 D, INTRAMUSCULAR; SEE IMAGE
     Route: 030
     Dates: start: 20040113
  4. SYNAGIS [Suspect]
     Indication: ANTIVIRAL PROPHYLAXIS
     Dosage: 122 MG, 1IN 30 D, INTRAMUSCULAR; SEE IMAGE
     Route: 030
     Dates: start: 20040216
  5. LEVOTHYROXINE SODIUM [Concomitant]

REACTIONS (2)
  - BRONCHITIS [None]
  - VIRAL INFECTION [None]
